FAERS Safety Report 22075405 (Version 1)
Quarter: 2023Q1

REPORT INFORMATION
  Report Type: Spontaneous
  Country: ES (occurrence: ES)
  Receive Date: 20230308
  Receipt Date: 20230308
  Transmission Date: 20230418
  Serious: Yes (Death, Hospitalization)
  Sender: FDA-Public Use
  Company Number: None

PATIENT
  Age: 93 Year
  Sex: Female

DRUGS (5)
  1. MEROPENEM [Suspect]
     Active Substance: MEROPENEM
     Indication: Endocarditis
     Dosage: 1 G, 3X/DAY
     Route: 042
     Dates: start: 20221229, end: 20230120
  2. DAPTOMYCIN [Suspect]
     Active Substance: DAPTOMYCIN
     Indication: Endocarditis
     Dosage: 500 MG, 1X/DAY
     Route: 042
     Dates: start: 20221229, end: 20230120
  3. ENOXAPARIN SODIUM [Suspect]
     Active Substance: ENOXAPARIN SODIUM
     Indication: Portal vein thrombosis
     Dosage: 20 MG, 2X/DAY
     Route: 058
     Dates: start: 20221221, end: 20221229
  4. ENOXAPARIN SODIUM [Suspect]
     Active Substance: ENOXAPARIN SODIUM
     Dosage: 40 MG, 2X/DAY
     Route: 058
     Dates: start: 20221230, end: 20230110
  5. CEFAZOLIN SODIUM [Suspect]
     Active Substance: CEFAZOLIN SODIUM
     Indication: Endocarditis
     Dosage: 2 G, 3X/DAY
     Route: 042
     Dates: start: 20221229, end: 20230120

REACTIONS (3)
  - Drug ineffective [Fatal]
  - Thrombocytopenia [Unknown]
  - Off label use [Unknown]

NARRATIVE: CASE EVENT DATE: 20221229
